FAERS Safety Report 4376340-1 (Version None)
Quarter: 2004Q2

REPORT INFORMATION
  Report Type: 
  Country: None (occurrence: None)
  Receive Date: 20040602
  Receipt Date: 20030417
  Transmission Date: 20050107
  Serious: Yes (Hospitalization)
  Sender: FDA-Public Use
  Company Number: NSADSS2003018600

PATIENT
  Sex: Male

DRUGS (1)
  1. SPORANOX [Suspect]
     Dosage: ORAL

REACTIONS (1)
  - HYPERSENSITIVITY [None]
